FAERS Safety Report 6069839-3 (Version None)
Quarter: 2009Q1

REPORT INFORMATION
  Report Type: 
  Country: None (occurrence: None)
  Receive Date: 20090209
  Receipt Date: 20090202
  Transmission Date: 20090719
  Serious: Yes (Hospitalization)
  Sender: FDA-Public Use
  Company Number: US-BIOGENIDEC-2007BI027313

PATIENT
  Age: 50 Year
  Sex: Female

DRUGS (2)
  1. AVONEX [Suspect]
     Indication: MULTIPLE SCLEROSIS
     Route: 030
     Dates: start: 20020313, end: 20070706
  2. AVONEX [Suspect]
     Route: 030
     Dates: start: 20070901, end: 20080428

REACTIONS (2)
  - FALL [None]
  - FOOT FRACTURE [None]
